FAERS Safety Report 4611273-4 (Version None)
Quarter: 2005Q1

REPORT INFORMATION
  Report Type: 
  Country: None (occurrence: None)
  Receive Date: 20050317
  Receipt Date: 20050309
  Transmission Date: 20050727
  Serious: Yes (Other)
  Sender: FDA-Public Use
  Company Number: PHBS2005JP03537

PATIENT

DRUGS (3)
  1. ATGAM [Concomitant]
  2. NEORAL [Suspect]
     Indication: APLASTIC ANAEMIA
     Dosage: 200 MG/D
     Route: 048
     Dates: start: 20050201, end: 20050201
  3. NEORAL [Suspect]
     Dosage: 250 MG/D
     Route: 048
     Dates: start: 20050201, end: 20050308

REACTIONS (5)
  - BLOOD CREATININE INCREASED [None]
  - DEPRESSED LEVEL OF CONSCIOUSNESS [None]
  - HYPONATRAEMIA [None]
  - OEDEMA [None]
  - PROTEINURIA [None]
